FAERS Safety Report 4815067-6 (Version None)
Quarter: 2005Q4

REPORT INFORMATION
  Report Type: 
  Country: None (occurrence: None)
  Receive Date: 20051026
  Receipt Date: 20051010
  Transmission Date: 20060501
  Serious: Yes (Other)
  Sender: FDA-Public Use
  Company Number: GBS051018709

PATIENT
  Age: 79 Year
  Sex: Female
  Weight: 100 kg

DRUGS (3)
  1. YENTREVE           (DULOXETINE HYDROCHLORIDE) [Suspect]
     Indication: INCONTINENCE
     Dosage: 20 MG
     Dates: start: 20050831, end: 20050920
  2. ENALAPRIL MALEATE [Concomitant]
  3. CODEINE PHOSPHATE AND ACETAMINOPHEN [Concomitant]

REACTIONS (2)
  - DRUG INEFFECTIVE [None]
  - VASCULITIS [None]
